FAERS Safety Report 4910902-5 (Version None)
Quarter: 2006Q1

REPORT INFORMATION
  Report Type: 
  Country: None (occurrence: None)
  Receive Date: 20060209
  Receipt Date: 20060131
  Transmission Date: 20060701
  Serious: Yes (Hospitalization)
  Sender: FDA-Public Use
  Company Number: FR200601005297

PATIENT
  Age: 59 Year

DRUGS (3)
  1. GEMZAR [Suspect]
     Indication: LUNG NEOPLASM MALIGNANT
     Dosage: 1910 MG, OTHER, INTRAVENOUS : 1625 MG, OTHER, INTRAVENOUS
     Route: 042
     Dates: start: 20050114, end: 20050121
  2. GEMZAR [Suspect]
     Indication: LUNG NEOPLASM MALIGNANT
     Dosage: 1910 MG, OTHER, INTRAVENOUS : 1625 MG, OTHER, INTRAVENOUS
     Route: 042
     Dates: start: 20050211, end: 20050218
  3. CISPLATIN [Concomitant]

REACTIONS (5)
  - ACUTE RESPIRATORY DISTRESS SYNDROME [None]
  - CHEST X-RAY ABNORMAL [None]
  - FEBRILE NEUTROPENIA [None]
  - INTERSTITIAL LUNG DISEASE [None]
  - PYREXIA [None]
